FAERS Safety Report 4639056-X (Version None)
Quarter: 2005Q2

REPORT INFORMATION
  Report Type: 
  Country: None (occurrence: None)
  Receive Date: 20050418
  Receipt Date: 20050405
  Transmission Date: 20051028
  Serious: Yes (Other)
  Sender: FDA-Public Use
  Company Number: HQWYE786407APR05

PATIENT

DRUGS (4)
  1. RAPAMUNE [Suspect]
     Indication: GRAFT DYSFUNCTION
     Dosage: 2 MG 1X PER 1 DAY;
  2. RAPAMUNE [Suspect]
     Indication: RENAL FAILURE CHRONIC
     Dosage: 2 MG 1X PER 1 DAY;
  3. MYCOPHENOLATE MOFETIL [Concomitant]
  4. PREDNISOLONE [Concomitant]

REACTIONS (3)
  - COMPLICATIONS OF TRANSPLANTED KIDNEY [None]
  - DISEASE PROGRESSION [None]
  - RENAL FAILURE [None]
